FAERS Safety Report 6894951-6 (Version None)
Quarter: 2010Q3

REPORT INFORMATION
  Report Type: 
  Country: None (occurrence: None)
  Receive Date: 20100802
  Receipt Date: 20100724
  Transmission Date: 20110219
  Serious: Yes (Other)
  Sender: FDA-Public Use
  Company Number: AU-ROCHE-717069

PATIENT
  Sex: Female

DRUGS (1)
  1. ACTEMRA [Suspect]
     Indication: RHEUMATOID ARTHRITIS
     Dosage: FORM: INFUSION
     Route: 042
     Dates: end: 20100724

REACTIONS (6)
  - BLOOD PRESSURE DECREASED [None]
  - DYSPNOEA [None]
  - ERYTHEMA [None]
  - FEELING ABNORMAL [None]
  - MIGRAINE [None]
  - PERIPHERAL COLDNESS [None]
